FAERS Safety Report 6388548-4 (Version None)
Quarter: 2009Q4

REPORT INFORMATION
  Report Type: 
  Country: None (occurrence: None)
  Receive Date: 20091005
  Receipt Date: 20090826
  Transmission Date: 20100525
  Serious: Yes (Hospitalization)
  Sender: FDA-Public Use
  Company Number: SL-ASTRAZENECA-2009SE10091

PATIENT
  Age: 12169 Day
  Sex: Female

DRUGS (1)
  1. XYLOCAINE [Suspect]
     Indication: INFILTRATION ANAESTHESIA
     Route: 058
     Dates: start: 20090812, end: 20090813

REACTIONS (4)
  - BLOOD PRESSURE FLUCTUATION [None]
  - CONJUNCTIVAL HYPERAEMIA [None]
  - PYREXIA [None]
  - TREMOR [None]
